FAERS Safety Report 7281294-4 (Version None)
Quarter: 2011Q1

REPORT INFORMATION
  Report Type: 
  Country: None (occurrence: None)
  Receive Date: 20110208
  Receipt Date: 20110131
  Transmission Date: 20110831
  Serious: Yes (Hospitalization)
  Sender: FDA-Public Use
  Company Number: GB-B.I. PHARMACEUTICALS,INC./RIDGEFIELD-2010-UK-01197UK

PATIENT
  Sex: Male

DRUGS (2)
  1. TROSPIUM [Suspect]
  2. FLOMAX [Suspect]
     Dosage: 1 ANZ
     Route: 048
     Dates: end: 20101214

REACTIONS (4)
  - CHOLELITHIASIS [None]
  - BILE DUCT OBSTRUCTION [None]
  - ALANINE AMINOTRANSFERASE INCREASED [None]
  - BLOOD ALKALINE PHOSPHATASE INCREASED [None]
